FAERS Safety Report 9356763 (Version 2)
Quarter: 2013Q3

REPORT INFORMATION
  Report Type: Spontaneous
  Country: FR (occurrence: FR)
  Receive Date: 20130619
  Receipt Date: 20130809
  Transmission Date: 20140515
  Serious: Yes (Other)
  Sender: FDA-Public Use
  Company Number: FR-UCBSA-088510

PATIENT
  Age: 70 Year
  Sex: Female
  Weight: 60 kg

DRUGS (4)
  1. NEUPRO [Suspect]
     Indication: PARKINSON^S DISEASE
     Route: 062
     Dates: start: 20130508, end: 20130510
  2. AZILECT [Concomitant]
     Indication: PARKINSON^S DISEASE
     Route: 048
     Dates: start: 20130415
  3. TANGANIL [Concomitant]
  4. IMODIUM [Concomitant]

REACTIONS (2)
  - Dermatitis bullous [Recovered/Resolved]
  - Local swelling [Recovered/Resolved]
